FAERS Safety Report 5385340-4 (Version None)
Quarter: 2007Q3

REPORT INFORMATION
  Report Type: 
  Country: None (occurrence: None)
  Receive Date: 20070709
  Receipt Date: 20070709
  Transmission Date: 20080115
  Serious: Yes (Life-Threatening, Hospitalization)
  Sender: FDA-Public Use
  Company Number: None

PATIENT
  Age: 66 Year
  Sex: Female

DRUGS (2)
  1. LOVENOX [Suspect]
  2. COUMADIN [Suspect]

REACTIONS (3)
  - ATRIAL FIBRILLATION [None]
  - POST PROCEDURAL HAEMATOMA [None]
  - URINARY TRACT INFECTION [None]
